FAERS Safety Report 23841681 (Version 2)
Quarter: 2024Q2

REPORT INFORMATION
  Report Type: Spontaneous
  Country: BR (occurrence: BR)
  Receive Date: 20240510
  Receipt Date: 20240527
  Transmission Date: 20240716
  Serious: Yes (Hospitalization, Other)
  Sender: FDA-Public Use
  Company Number: BR-Accord-423955

PATIENT
  Age: 33 Year
  Sex: Female
  Weight: 60 kg

DRUGS (12)
  1. PACLITAXEL [Suspect]
     Active Substance: PACLITAXEL
     Indication: Cervix carcinoma
     Dosage: 248 MG IN 500 ML OF SALINE SOLUTION OVER 3 HOURS
     Route: 042
     Dates: start: 20240221, end: 20240221
  2. BROMOPRIDE [Concomitant]
     Active Substance: BROMOPRIDE
     Route: 048
  3. NYSTATIN [Concomitant]
     Active Substance: NYSTATIN
     Route: 048
  4. ONDANSETRON [Concomitant]
     Active Substance: ONDANSETRON
     Route: 048
  5. DEXAMETHASONE [Concomitant]
     Active Substance: DEXAMETHASONE
     Route: 048
  6. DIAZEPAM [Concomitant]
     Active Substance: DIAZEPAM
     Route: 048
  7. DIPYRONE [Concomitant]
     Active Substance: DIPYRONE
     Route: 048
  8. HYDROCORTISONE [Concomitant]
     Active Substance: HYDROCORTISONE
     Indication: Chemotherapy side effect prophylaxis
     Route: 042
  9. DIPHENHYDRAMINE [Concomitant]
     Active Substance: DIPHENHYDRAMINE
     Indication: Chemotherapy side effect prophylaxis
     Route: 042
  10. CARBOPLATIN [Concomitant]
     Active Substance: CARBOPLATIN
     Indication: Cervix carcinoma
     Dosage: 546 MG IN 250 ML OF GLUCOSE SOLUTION OVER 1 HOUR
     Route: 042
     Dates: start: 20240221, end: 20240221
  11. DEXAMETHASONE [Concomitant]
     Active Substance: DEXAMETHASONE
     Indication: Chemotherapy side effect prophylaxis
     Route: 042
  12. ONDANSETRON [Concomitant]
     Active Substance: ONDANSETRON
     Indication: Chemotherapy side effect prophylaxis
     Route: 042

REACTIONS (4)
  - Off label use [Unknown]
  - Haemoglobinaemia [Recovered/Resolved]
  - Neutropenia [Recovered/Resolved]
  - Febrile neutropenia [Unknown]

NARRATIVE: CASE EVENT DATE: 20240302
